FAERS Safety Report 8373858-1 (Version None)
Quarter: 2012Q2

REPORT INFORMATION
  Report Type: 
  Country: None (occurrence: None)
  Receive Date: 20120521
  Receipt Date: 20120507
  Transmission Date: 20120825
  Serious: No
  Sender: FDA-Public Use
  Company Number: US-ASTRAZENECA-2011SE63121

PATIENT
  Age: 53 Year
  Sex: Female

DRUGS (3)
  1. NEXIUM [Suspect]
     Route: 048
  2. PRILOSEC OTC [Suspect]
     Route: 048
  3. PRILOSEC [Suspect]
     Route: 048

REACTIONS (7)
  - INSOMNIA [None]
  - PAIN [None]
  - GASTROINTESTINAL DISORDER [None]
  - DYSPEPSIA [None]
  - INTENTIONAL DRUG MISUSE [None]
  - REGURGITATION [None]
  - DRUG INEFFECTIVE [None]
